FAERS Safety Report 7340535-5 (Version None)
Quarter: 2011Q1

REPORT INFORMATION
  Report Type: 
  Country: None (occurrence: None)
  Receive Date: 20110309
  Receipt Date: 20110225
  Transmission Date: 20110831
  Serious: Yes (Hospitalization, Other)
  Sender: FDA-Public Use
  Company Number: PHHY2011KR16590

PATIENT
  Age: 60 Year
  Sex: Female

DRUGS (1)
  1. CARBAMAZEPINE [Suspect]
     Indication: MYELITIS TRANSVERSE

REACTIONS (9)
  - MENTAL STATUS CHANGES [None]
  - JAUNDICE [None]
  - STEVENS-JOHNSON SYNDROME [None]
  - HEPATIC FAILURE [None]
  - DERMATITIS BULLOUS [None]
  - DEPRESSED LEVEL OF CONSCIOUSNESS [None]
  - ACUTE HEPATIC FAILURE [None]
  - RASH PAPULAR [None]
  - SOMNOLENCE [None]
